FAERS Safety Report 6107734-1 (Version None)
Quarter: 2009Q1

REPORT INFORMATION
  Report Type: 
  Country: None (occurrence: None)
  Receive Date: 20090309
  Receipt Date: 20090227
  Transmission Date: 20090719
  Serious: Yes (Hospitalization)
  Sender: FDA-Public Use
  Company Number: A0769360A

PATIENT
  Age: 64 Year
  Sex: Male
  Weight: 92.6 kg

DRUGS (4)
  1. AVANDIA [Suspect]
     Dosage: 4MG PER DAY
     Route: 048
     Dates: start: 20051101, end: 20070401
  2. METFORMIN [Concomitant]
  3. GLIPIZIDE [Concomitant]
  4. NOVOLIN [Concomitant]

REACTIONS (5)
  - ARTERIOSCLEROSIS [None]
  - CARDIOVASCULAR DISORDER [None]
  - CORONARY ARTERY DISEASE [None]
  - MYOCARDIAL INFARCTION [None]
  - RETINOPATHY [None]
